FAERS Safety Report 12634254 (Version 1)
Quarter: 2016Q3

REPORT INFORMATION
  Report Type: Spontaneous
  Country: US (occurrence: US)
  Receive Date: 20160809
  Receipt Date: 20160809
  Transmission Date: 20161109
  Serious: No
  Sender: FDA-Public Use
  Company Number: US-BAUSCH-BL-2015-028252

PATIENT
  Age: 70 Year
  Sex: Female

DRUGS (2)
  1. DORZOLAMIDE HYDROCHLORIDE OPHTHALMIC SOLUTION 2% [Suspect]
     Active Substance: DORZOLAMIDE HYDROCHLORIDE
     Dosage: IN THE RIGHT EYE
     Route: 061
     Dates: start: 201508
  2. DORZOLAMIDE HYDROCHLORIDE OPHTHALMIC SOLUTION 2% [Suspect]
     Active Substance: DORZOLAMIDE HYDROCHLORIDE
     Indication: GLAUCOMA
     Dosage: IN BOTH EYES
     Route: 061
     Dates: start: 2014

REACTIONS (2)
  - Sleep apnoea syndrome [Not Recovered/Not Resolved]
  - Weight decreased [Not Recovered/Not Resolved]

NARRATIVE: CASE EVENT DATE: 201508
